FAERS Safety Report 21364920 (Version 5)
Quarter: 2023Q2

REPORT INFORMATION
  Report Type: Spontaneous
  Country: JP (occurrence: JP)
  Receive Date: 20220922
  Receipt Date: 20230418
  Transmission Date: 20230722
  Serious: Yes (Other)
  Sender: FDA-Public Use
  Company Number: JP-AMERICAN REGENT INC-2022002751

PATIENT
  Age: 49 Year
  Sex: Female

DRUGS (19)
  1. FERINJECT [Suspect]
     Active Substance: FERRIC CARBOXYMALTOSE
     Indication: Iron deficiency anaemia
     Dosage: 500 MILLIGRAM DILUTED IN 100 ML OF 0.9 PERCENT NACL
     Dates: start: 20200926, end: 20200926
  2. FERINJECT [Suspect]
     Active Substance: FERRIC CARBOXYMALTOSE
     Dosage: 500 MILLIGRAM DILUTED IN 100 ML OF 0.9 PERCENT NACL
     Dates: start: 20201003, end: 20201003
  3. FERINJECT [Suspect]
     Active Substance: FERRIC CARBOXYMALTOSE
     Dosage: 500 MILLIGRAM DILUTED IN 100 ML OF 0.9 PERCENT NACL
     Dates: start: 20201010, end: 20201010
  4. FERINJECT [Suspect]
     Active Substance: FERRIC CARBOXYMALTOSE
     Dosage: 500 MILLIGRAM DILUTED IN 100 ML OF 0.9 PERCENT NACL
     Dates: start: 20210213, end: 20210213
  5. FERINJECT [Suspect]
     Active Substance: FERRIC CARBOXYMALTOSE
     Dosage: 500 MILLIGRAM DILUTED IN 100 ML OF 0.9 PERCENT NACL
     Dates: start: 20210227, end: 20210227
  6. FERINJECT [Suspect]
     Active Substance: FERRIC CARBOXYMALTOSE
     Dosage: 500 MILLIGRAM DILUTED IN 100 ML OF 0.9 PERCENT NACL
     Dates: start: 20210306, end: 20210306
  7. FERINJECT [Suspect]
     Active Substance: FERRIC CARBOXYMALTOSE
     Dosage: 500 MILLIGRAM DILUTED IN 100 ML OF 0.9 PERCENT NACL
     Dates: start: 20210710, end: 20210710
  8. FERINJECT [Suspect]
     Active Substance: FERRIC CARBOXYMALTOSE
     Dosage: 500 MILLIGRAM DILUTED IN 100 ML OF 0.9 PERCENT NACL
     Dates: start: 20210812, end: 20210812
  9. FERINJECT [Suspect]
     Active Substance: FERRIC CARBOXYMALTOSE
     Dosage: 500 MILLIGRAM DILUTED IN 100 ML OF 0.9 PERCENT NACL
     Dates: start: 20210828, end: 20210828
  10. FERINJECT [Suspect]
     Active Substance: FERRIC CARBOXYMALTOSE
     Dosage: 500 MILLIGRAM DILUTED IN 100 ML OF 0.9 PERCENT NACL
     Dates: start: 20211113, end: 20211113
  11. FERINJECT [Suspect]
     Active Substance: FERRIC CARBOXYMALTOSE
     Dosage: 500 MILLIGRAM DILUTED IN 100 ML OF 0.9 PERCENT NACL
     Dates: start: 20211127, end: 20211127
  12. FERINJECT [Suspect]
     Active Substance: FERRIC CARBOXYMALTOSE
     Dosage: 500 MILLIGRAM DILUTED IN 100 ML OF 0.9 PERCENT NACL
     Dates: start: 20211204, end: 20211204
  13. FERINJECT [Suspect]
     Active Substance: FERRIC CARBOXYMALTOSE
     Dosage: 500 MILLIGRAM DILUTED IN 100 ML OF 0.9 PERCENT NACL
     Dates: start: 20220122, end: 20220122
  14. FERINJECT [Suspect]
     Active Substance: FERRIC CARBOXYMALTOSE
     Dosage: 500 MILLIGRAM DILUTED IN 100 ML OF 0.9 PERCENT NACL
     Dates: start: 20220212, end: 20220212
  15. FERINJECT [Suspect]
     Active Substance: FERRIC CARBOXYMALTOSE
     Dosage: 500 MILLIGRAM DILUTED IN 100 ML OF 0.9 PERCENT NACL
     Dates: start: 20220502, end: 20220502
  16. FERINJECT [Suspect]
     Active Substance: FERRIC CARBOXYMALTOSE
     Dosage: 500 MILLIGRAM DILUTED IN 100 ML OF 0.9 PERCENT NACL
     Dates: start: 20220514, end: 20220514
  17. FERINJECT [Suspect]
     Active Substance: FERRIC CARBOXYMALTOSE
     Dosage: 500 MILLIGRAM DILUTED IN 100 ML OF 0.9 PERCENT NACL
     Dates: start: 20220525, end: 20220525
  18. FERINJECT [Suspect]
     Active Substance: FERRIC CARBOXYMALTOSE
     Dosage: 500 MILLIGRAM DILUTED IN 100 ML OF 0.9 PERCENT NACL
     Dates: start: 20220827, end: 20220827
  19. IRON SUCROSE [Suspect]
     Active Substance: IRON SUCROSE
     Indication: Iron deficiency anaemia
     Dosage: UNK; TOTAL FREQUENCY OF ADMINISTRATION WAS GIVEN AS 15 TIMES
     Dates: start: 20190727, end: 20200905

REACTIONS (5)
  - Fractured sacrum [Unknown]
  - Osteomalacia [Unknown]
  - Fall [Unknown]
  - Fibromyalgia [Unknown]
  - Hypophosphataemia [Recovering/Resolving]

NARRATIVE: CASE EVENT DATE: 20220101
